FAERS Safety Report 12454438 (Version 1)
Quarter: 2016Q2

REPORT INFORMATION
  Report Type: Spontaneous
  Country: US (occurrence: None)
  Receive Date: 20160609
  Receipt Date: 20160609
  Transmission Date: 20160815
  Serious: Yes (Hospitalization)
  Sender: FDA-Public Use
  Company Number: None

PATIENT
  Age: 8 Month
  Sex: Male
  Weight: 9.35 kg

DRUGS (5)
  1. TRACLEER [Suspect]
     Active Substance: BOSENTAN
     Indication: PULMONARY HYPERTENSION
     Route: 048
     Dates: start: 20160602, end: 20160607
  2. SILDENAFIL. [Concomitant]
     Active Substance: SILDENAFIL
  3. OMEPRAZOLE. [Concomitant]
     Active Substance: OMEPRAZOLE
  4. DIGOXIN. [Concomitant]
     Active Substance: DIGOXIN
  5. LEVOTHYROXINE. [Concomitant]
     Active Substance: LEVOTHYROXINE

REACTIONS (4)
  - Alanine aminotransferase increased [None]
  - Aspartate aminotransferase increased [None]
  - Sedation [None]
  - Somnolence [None]

NARRATIVE: CASE EVENT DATE: 20160607
